FAERS Safety Report 9818207 (Version 1)
Quarter: 2014Q1

REPORT INFORMATION
  Report Type: Spontaneous
  Country: CA (occurrence: CA)
  Receive Date: 20140115
  Receipt Date: 20140115
  Transmission Date: 20141002
  Serious: Yes (Death, Other)
  Sender: FDA-Public Use
  Company Number: CA-ASTELLAS-2014US000405

PATIENT
  Age: 69 Year
  Sex: Male

DRUGS (1)
  1. PROGRAF [Suspect]
     Indication: RENAL TRANSPLANT
     Dosage: UNK
     Route: 048
     Dates: end: 201309

REACTIONS (2)
  - Death [Fatal]
  - Dyspnoea [Unknown]
